FAERS Safety Report 8044159-6 (Version None)
Quarter: 2012Q1

REPORT INFORMATION
  Report Type: 
  Country: None (occurrence: None)
  Receive Date: 20120113
  Receipt Date: 20111027
  Transmission Date: 20120608
  Serious: Yes (Death)
  Sender: FDA-Public Use
  Company Number: CO-UCBSA-044893

PATIENT
  Age: 13 Year
  Sex: Female

DRUGS (5)
  1. KEPPRA [Suspect]
     Indication: STATUS EPILEPTICUS
     Dosage: 50 MG/ KG
     Route: 042
     Dates: start: 20111025, end: 20111026
  2. LAMOTRIGINE [Concomitant]
  3. KEPPRA [Suspect]
     Indication: CONVULSION
     Dosage: 50 MG/ KG
     Route: 042
     Dates: start: 20111025, end: 20111026
  4. VALPROIC ACID [Concomitant]
  5. CLONAZEPAM [Concomitant]
     Dosage: 3 MG/KG
     Route: 042

REACTIONS (1)
  - CARDIAC ARREST [None]
